FAERS Safety Report 6120064-7 (Version None)
Quarter: 2009Q1

REPORT INFORMATION
  Report Type: 
  Country: None (occurrence: None)
  Receive Date: 20090316
  Receipt Date: 20090309
  Transmission Date: 20090719
  Serious: Yes (Life-Threatening, Hospitalization)
  Sender: FDA-Public Use
  Company Number: US-AMGEN-US314492

PATIENT
  Sex: Male

DRUGS (5)
  1. ETANERCEPT [Suspect]
     Indication: RHEUMATOID ARTHRITIS
     Route: 058
     Dates: start: 19970808
  2. MOTRIN [Concomitant]
     Route: 048
     Dates: start: 20070514, end: 20080923
  3. BIOTIN [Concomitant]
     Route: 048
     Dates: start: 20060228
  4. VITAMIN D [Concomitant]
     Route: 048
     Dates: start: 20060228
  5. ASCORBIC ACID [Concomitant]
     Route: 048
     Dates: start: 19770101

REACTIONS (1)
  - ANGIOEDEMA [None]
